FAERS Safety Report 20425733 (Version 1)
Quarter: 2022Q1

REPORT INFORMATION
  Report Type: Report from Study
  Country: US (occurrence: US)
  Receive Date: 20220204
  Receipt Date: 20220204
  Transmission Date: 20220424
  Serious: No
  Sender: FDA-Public Use
  Company Number: US-EXELIXIS-CABO-21039763

PATIENT
  Sex: Female

DRUGS (1)
  1. CABOMETYX [Suspect]
     Active Substance: CABOZANTINIB S-MALATE
     Indication: Renal cancer
     Dosage: 60 MG, QD
     Route: 065
     Dates: start: 202102, end: 202104

REACTIONS (6)
  - Eye infection [Unknown]
  - Blister [Unknown]
  - Tongue discomfort [Unknown]
  - Taste disorder [Unknown]
  - Muscle spasms [Unknown]
  - Diarrhoea [Unknown]
